FAERS Safety Report 14841409 (Version 1)
Quarter: 2018Q2

REPORT INFORMATION
  Report Type: Spontaneous
  Country: US (occurrence: US)
  Receive Date: 20180503
  Receipt Date: 20180503
  Transmission Date: 20180711
  Serious: Yes (Other)
  Sender: FDA-Public Use
  Company Number: US-TEVA-2018-US-887685

PATIENT
  Age: 83 Year
  Sex: Female

DRUGS (1)
  1. SULFAMETHOXAZOLE W/TRIMETHOPRIM [Suspect]
     Active Substance: SULFAMETHOXAZOLE\TRIMETHOPRIM
     Indication: PNEUMONIA BACTERIAL
     Dosage: 800 MG/160 MG THREE TIMES A DAY
     Route: 042

REACTIONS (1)
  - Inappropriate antidiuretic hormone secretion [Recovering/Resolving]
